FAERS Safety Report 6665358-1 (Version None)
Quarter: 2010Q1

REPORT INFORMATION
  Report Type: 
  Country: None (occurrence: None)
  Receive Date: 20100323
  Receipt Date: 20100120
  Transmission Date: 20100710
  Serious: No
  Sender: FDA-Public Use
  Company Number: 100201-0000135

PATIENT
  Age: 14 Year
  Sex: Male

DRUGS (1)
  1. SABRIL [Suspect]
     Indication: COMPLEX PARTIAL SEIZURES
     Dosage: 500 MG; BID; PO
     Route: 048
     Dates: start: 20091020, end: 20091210

REACTIONS (1)
  - GENERAL SYMPTOM [None]
